FAERS Safety Report 25168083 (Version 3)
Quarter: 2025Q2

REPORT INFORMATION
  Report Type: Report from Study
  Country: BR (occurrence: BR)
  Receive Date: 20250407
  Receipt Date: 20250610
  Transmission Date: 20250716
  Serious: Yes (Death, Hospitalization, Other)
  Sender: TAKEDA
  Company Number: BR-TAKEDA-2025TUS034076

PATIENT
  Age: 64 Year
  Sex: Male
  Weight: 71.3 kg

DRUGS (1)
  1. MOBOCERTINIB [Suspect]
     Active Substance: MOBOCERTINIB
     Indication: Lung adenocarcinoma
     Dosage: 120 MILLIGRAM, QD
     Dates: start: 20221109, end: 20240228

REACTIONS (13)
  - Uraemic encephalopathy [Fatal]
  - Respiratory arrest [Fatal]
  - Metastases to lung [Fatal]
  - Brain neoplasm [Fatal]
  - Respiratory tract infection [Fatal]
  - Lung adenocarcinoma [Unknown]
  - Metastases to central nervous system [Unknown]
  - Tumour haemorrhage [Unknown]
  - Hip fracture [Unknown]
  - Femur fracture [Unknown]
  - Fall [Unknown]
  - General physical health deterioration [Unknown]
  - Performance status decreased [Unknown]

NARRATIVE: CASE EVENT DATE: 20231213
